FAERS Safety Report 15375874 (Version 1)
Quarter: 2018Q3

REPORT INFORMATION
  Report Type: Spontaneous
  Country: GB (occurrence: GB)
  Receive Date: 20180912
  Receipt Date: 20180912
  Transmission Date: 20181010
  Serious: Yes (Hospitalization)
  Sender: FDA-Public Use
  Company Number: GB-PFIZER INC-2018363433

PATIENT
  Age: 37 Year
  Sex: Female

DRUGS (11)
  1. HYDROXOCOBALAMIN [Concomitant]
     Active Substance: HYDROXOCOBALAMIN
  2. LAMICTAL [Suspect]
     Active Substance: LAMOTRIGINE
     Indication: EPILEPSY
     Dosage: 600 MG, 1X/DAY (LONGTERM)
     Route: 048
  3. LEVETIRACETAM. [Suspect]
     Active Substance: LEVETIRACETAM
     Indication: EPILEPSY
     Dosage: 3000 MG, 1X/DAY (LONGTERM)
     Route: 048
  4. ESLICARBAZEPINE [Concomitant]
     Active Substance: ESLICARBAZEPINE
  5. PREGABALIN. [Suspect]
     Active Substance: PREGABALIN
     Dosage: 50 MG, 1X/DAY (REDUCING WEEKLY REGIME FROM 75MG TWICE DAILY)
     Route: 048
     Dates: start: 20180626
  6. RISPERIDONE. [Suspect]
     Active Substance: RISPERIDONE
     Indication: AGITATION
     Dosage: 2 MG, 1X/DAY
     Route: 048
     Dates: start: 20180802, end: 20180813
  7. PREGABALIN. [Suspect]
     Active Substance: PREGABALIN
     Indication: EPILEPSY
     Dosage: 75 MG, 2X/DAY
  8. LACTULOSE. [Concomitant]
     Active Substance: LACTULOSE
  9. CLOBAZAM [Suspect]
     Active Substance: CLOBAZAM
     Indication: EPILEPSY
     Dosage: 20 MG, 1X/DAY (NIGHTLY, LONGTERM)
     Route: 048
  10. FLUDROCORTISONE [Suspect]
     Active Substance: FLUDROCORTISONE
     Indication: HYPOTENSION
     Dosage: 50 UG, 1X/DAY (MORNING)
     Route: 048
     Dates: start: 20180710
  11. COLECALCIFEROL [Suspect]
     Active Substance: CHOLECALCIFEROL
     Dosage: 1000 IU, 1X/DAY (LONGTERM)
     Route: 048

REACTIONS (1)
  - Neutropenic sepsis [Not Recovered/Not Resolved]

NARRATIVE: CASE EVENT DATE: 20180813
